FAERS Safety Report 18107630 (Version 1)
Quarter: 2020Q3

REPORT INFORMATION
  Report Type: Spontaneous
  Country: JP (occurrence: JP)
  Receive Date: 20200804
  Receipt Date: 20200804
  Transmission Date: 20201103
  Serious: Yes (Death, Other)
  Sender: FDA-Public Use
  Company Number: JP-PFIZER INC-2020293129

PATIENT

DRUGS (1)
  1. ANAEMETRO 500MG [Suspect]
     Active Substance: METRONIDAZOLE
     Indication: INFECTIOUS PLEURAL EFFUSION
     Dosage: UNK
     Route: 041

REACTIONS (3)
  - Infectious pleural effusion [Fatal]
  - Disease progression [Fatal]
  - Therapeutic response decreased [Unknown]
